FAERS Safety Report 9866413 (Version 1)
Quarter: 2014Q1

REPORT INFORMATION
  Report Type: Report from Study
  Country: US (occurrence: US)
  Receive Date: 20140204
  Receipt Date: 20140204
  Transmission Date: 20141002
  Serious: Yes (Death, Hospitalization)
  Sender: FDA-Public Use
  Company Number: US-ROCHE-1340510

PATIENT
  Age: 26 Year
  Sex: Female
  Weight: 56.8 kg

DRUGS (20)
  1. AVASTIN [Suspect]
     Indication: METASTATIC NEOPLASM
     Route: 042
     Dates: start: 20101228
  2. AVASTIN [Suspect]
     Indication: MALIGNANT MELANOMA
     Route: 042
     Dates: start: 20110214
  3. AVASTIN [Suspect]
     Indication: MALIGNANT MELANOMA
     Dosage: THE PATIENT RECEIVED DOSE ON 07/MAR/2011.
     Route: 042
  4. KYTRIL [Suspect]
     Indication: PRODUCT USED FOR UNKNOWN INDICATION
     Route: 042
  5. TAXOL [Suspect]
     Indication: PRODUCT USED FOR UNKNOWN INDICATION
     Route: 042
  6. COMPAZINE [Concomitant]
  7. CARBOPLATIN [Concomitant]
     Route: 042
  8. ABRAXANE [Concomitant]
     Route: 042
  9. DEXAMETHASONE [Concomitant]
     Route: 042
  10. DEXAMETHASONE [Concomitant]
     Route: 048
  11. FAMOTIDINE [Concomitant]
     Route: 042
  12. PHENERGAN [Concomitant]
  13. ZOFRAN [Concomitant]
  14. ATIVAN [Concomitant]
  15. ASPIRIN [Concomitant]
  16. ACTIVASE [Concomitant]
     Route: 065
  17. GABAPENTIN [Concomitant]
  18. IBUPROFEN [Concomitant]
  19. ALOXI [Concomitant]
     Route: 042
  20. BENADRYL (UNITED STATES) [Concomitant]
     Route: 042

REACTIONS (19)
  - Death [Fatal]
  - Mass [Unknown]
  - Dehydration [Unknown]
  - Disease progression [Unknown]
  - Pain [Unknown]
  - Skin mass [Unknown]
  - Metastases to skin [Unknown]
  - Nausea [Unknown]
  - Vomiting [Unknown]
  - Candida infection [Unknown]
  - Hyperhidrosis [Unknown]
  - Abdominal discomfort [Unknown]
  - Oedema peripheral [Unknown]
  - Lymphoedema [Unknown]
  - Blood pressure increased [Unknown]
  - Local swelling [Unknown]
  - Adverse drug reaction [Unknown]
  - Abdominal distension [Unknown]
  - Anaemia [Unknown]
